FAERS Safety Report 9756380 (Version 1)
Quarter: 2013Q4

REPORT INFORMATION
  Report Type: Spontaneous
  Country: US (occurrence: US)
  Receive Date: 20131213
  Receipt Date: 20131213
  Transmission Date: 20140711
  Serious: No
  Sender: FDA-Public Use
  Company Number: US-GLAXOSMITHKLINE-A1039529A

PATIENT
  Age: 42 Year
  Sex: Female

DRUGS (2)
  1. EQUATE NTS 14MG, CLEAR [Suspect]
     Indication: SMOKING CESSATION THERAPY
     Route: 062
     Dates: start: 20130824, end: 20130828
  2. CYMBALTA [Concomitant]

REACTIONS (3)
  - Abnormal dreams [Recovered/Resolved]
  - Depression [Recovered/Resolved]
  - Therapeutic response unexpected [Recovered/Resolved]
